FAERS Safety Report 7423832-4 (Version None)
Quarter: 2011Q2

REPORT INFORMATION
  Report Type: 
  Country: None (occurrence: None)
  Receive Date: 20110419
  Receipt Date: 20110407
  Transmission Date: 20111010
  Serious: Yes (Disabling)
  Sender: FDA-Public Use
  Company Number: PHHY2011IT24773

PATIENT
  Age: 54 Year
  Sex: Female

DRUGS (1)
  1. ZOMETA [Suspect]
     Indication: METASTASES TO BONE
     Dosage: 4 MG, QMO
     Route: 042
     Dates: start: 20041101, end: 20071123

REACTIONS (2)
  - OSTEONECROSIS OF JAW [None]
  - BONE DISORDER [None]
